FAERS Safety Report 25375158 (Version 1)
Quarter: 2025Q2

REPORT INFORMATION
  Report Type: Spontaneous
  Country: FR (occurrence: FR)
  Receive Date: 20250529
  Receipt Date: 20250529
  Transmission Date: 20250717
  Serious: Yes (Hospitalization)
  Sender: NOVARTIS
  Company Number: None

PATIENT
  Age: 11 Year
  Sex: Female
  Weight: 44.3 kg

DRUGS (11)
  1. EXJADE [Suspect]
     Active Substance: DEFERASIROX
     Indication: Thalassaemia beta
     Dosage: 540 MG, QD
     Route: 048
     Dates: start: 20240903, end: 20250226
  2. EXJADE [Suspect]
     Active Substance: DEFERASIROX
     Dosage: 630 MG, QD
     Route: 048
     Dates: start: 20250226, end: 20250426
  3. FERRIPROX [Suspect]
     Active Substance: DEFERIPRONE
     Indication: Thalassaemia beta
     Dosage: 3500 MG, QD
     Route: 048
     Dates: start: 20240903, end: 20250318
  4. FERRIPROX [Suspect]
     Active Substance: DEFERIPRONE
     Dosage: 4000 MG, QD
     Route: 048
     Dates: start: 20250318, end: 20250420
  5. FERRIPROX [Suspect]
     Active Substance: DEFERIPRONE
     Dosage: 4500 MG, QD
     Route: 048
     Dates: start: 20250420, end: 20250426
  6. HYDROCORTISONE [Concomitant]
     Active Substance: HYDROCORTISONE
     Indication: Product used for unknown indication
     Route: 065
  7. FOLIC ACID [Concomitant]
     Active Substance: FOLIC ACID
     Indication: Product used for unknown indication
     Route: 065
  8. CHOLECALCIFEROL [Concomitant]
     Active Substance: CHOLECALCIFEROL
     Indication: Product used for unknown indication
     Route: 065
  9. Imurel [Concomitant]
     Indication: Product used for unknown indication
     Route: 065
  10. IBUPROFEN [Concomitant]
     Active Substance: IBUPROFEN
     Indication: Product used for unknown indication
     Route: 065
  11. DOLIPRANE [Concomitant]
     Active Substance: ACETAMINOPHEN
     Indication: Product used for unknown indication
     Route: 065

REACTIONS (1)
  - Hepatic cytolysis [Recovered/Resolved]

NARRATIVE: CASE EVENT DATE: 20250426
